FAERS Safety Report 16298327 (Version 2)
Quarter: 2024Q1

REPORT INFORMATION
  Report Type: Report from Study
  Country: US (occurrence: US)
  Receive Date: 20190510
  Receipt Date: 20240201
  Transmission Date: 20240409
  Serious: Yes (Other)
  Sender: FDA-Public Use
  Company Number: US-SHIRE-US201915337

PATIENT
  Age: 61 Year
  Sex: Female

DRUGS (3)
  1. ICATIBANT [Suspect]
     Active Substance: ICATIBANT ACETATE
     Indication: Hereditary angioedema
     Dosage: 30 MILLIGRAM
     Route: 050
  2. ICATIBANT [Suspect]
     Active Substance: ICATIBANT ACETATE
     Indication: Hereditary angioedema
     Dosage: 30 MILLIGRAM
     Route: 050
  3. TAKHZYRO [Suspect]
     Active Substance: LANADELUMAB-FLYO
     Indication: Product used for unknown indication
     Dosage: 300 MILLIGRAM, Q2WEEKS
     Route: 050

REACTIONS (1)
  - Hereditary angioedema [Recovered/Resolved]

NARRATIVE: CASE EVENT DATE: 20190424
